FAERS Safety Report 6112018-1 (Version None)
Quarter: 2009Q1

REPORT INFORMATION
  Report Type: 
  Country: None (occurrence: None)
  Receive Date: 20090311
  Receipt Date: 20090303
  Transmission Date: 20090719
  Serious: Yes (Death)
  Sender: FDA-Public Use
  Company Number: US-JNJCH-2009006336

PATIENT
  Sex: Male

DRUGS (2)
  1. DIPHENHYDRAMINE HCL [Suspect]
     Indication: DRUG USE FOR UNKNOWN INDICATION
     Dosage: TEXT:UNSPECIFIED
     Route: 065
  2. DEXTROMETHORPHAN [Suspect]
     Indication: OFF LABEL USE
     Dosage: TEXT:UNSPECIFIED
     Route: 065

REACTIONS (1)
  - INTENTIONAL DRUG MISUSE [None]
